FAERS Safety Report 10927667 (Version 4)
Quarter: 2016Q2

REPORT INFORMATION
  Report Type: Report from Study
  Country: AR (occurrence: AR)
  Receive Date: 20150319
  Receipt Date: 20160413
  Transmission Date: 20160815
  Serious: Yes (Hospitalization, Disabling, Other)
  Sender: FDA-Public Use
  Company Number: AR-BRISTOL-MYERS SQUIBB COMPANY-20951117

PATIENT
  Age: 53 Year
  Sex: Female

DRUGS (2)
  1. ABATACEPT [Suspect]
     Active Substance: ABATACEPT
     Dosage: UNK
     Route: 042
     Dates: start: 20121127
  2. ABATACEPT [Suspect]
     Active Substance: ABATACEPT
     Indication: RHEUMATOID ARTHRITIS
     Dosage: 250 MG, QMO
     Route: 042
     Dates: start: 20080901

REACTIONS (17)
  - Skin disorder [Unknown]
  - Liver disorder [Unknown]
  - Fungal infection [Unknown]
  - Fatigue [Unknown]
  - Vomiting [Unknown]
  - Hypersensitivity [Recovering/Resolving]
  - Joint swelling [Not Recovered/Not Resolved]
  - Lung disorder [Unknown]
  - Vaginal disorder [Unknown]
  - Drug ineffective [Not Recovered/Not Resolved]
  - Angioedema [Recovering/Resolving]
  - Diarrhoea [Unknown]
  - Dyspnoea [Unknown]
  - Peripheral swelling [Unknown]
  - Abdominal discomfort [Not Recovered/Not Resolved]
  - Cardiac disorder [Recovering/Resolving]
  - Dyspepsia [Unknown]

NARRATIVE: CASE EVENT DATE: 20121201
